FAERS Safety Report 9703234 (Version 1)
Quarter: 2013Q4

REPORT INFORMATION
  Report Type: Spontaneous
  Country: US (occurrence: US)
  Receive Date: 20131122
  Receipt Date: 20131122
  Transmission Date: 20140711
  Serious: No
  Sender: FDA-Public Use
  Company Number: US-009507513-1311USA008798

PATIENT
  Age: 58 Year
  Sex: Male

DRUGS (2)
  1. AZASITE [Suspect]
     Indication: BLEPHARITIS
     Dosage: 2 GTT, BID
     Route: 047
     Dates: start: 20131112, end: 20131113
  2. AZASITE [Suspect]
     Dosage: 2 GTT, QD
     Route: 047
     Dates: start: 20131114, end: 20131118

REACTIONS (1)
  - Drug effect incomplete [Not Recovered/Not Resolved]
